FAERS Safety Report 23184568 (Version 1)
Quarter: 2023Q4

REPORT INFORMATION
  Report Type: Spontaneous
  Country: US (occurrence: US)
  Receive Date: 20231115
  Receipt Date: 20231115
  Transmission Date: 20240110
  Serious: No
  Sender: FDA-Public Use
  Company Number: US-AUROBINDO-AUR-APL-2022-049299

PATIENT
  Age: 73 Year
  Sex: Male
  Weight: 68 kg

DRUGS (1)
  1. PANTOPRAZOLE SODIUM [Suspect]
     Active Substance: PANTOPRAZOLE SODIUM
     Indication: Dyspepsia
     Dosage: 1 DOSAGE FORM, ONCE A DAY
     Route: 065
     Dates: start: 20221030

REACTIONS (3)
  - Visual impairment [Unknown]
  - Product substitution issue [Unknown]
  - Joint swelling [Unknown]
